FAERS Safety Report 7997811-2 (Version None)
Quarter: 2011Q4

REPORT INFORMATION
  Report Type: 
  Country: None (occurrence: None)
  Receive Date: 20111212
  Receipt Date: 20111205
  Transmission Date: 20120403
  Serious: Yes (Other)
  Sender: FDA-Public Use
  Company Number: 2011030478

PATIENT
  Age: 60 Year
  Sex: Female
  Weight: 77.1115 kg

DRUGS (2)
  1. HIZENTRA [Suspect]
     Indication: IMMUNODEFICIENCY
     Dosage: (3 G 1X/WEEK SUBCUTANEOUS), (SUBCUTANEOUS)
     Route: 058
     Dates: start: 20111129
  2. HIZENTRA [Suspect]

REACTIONS (1)
  - SUBCUTANEOUS ABSCESS [None]
